FAERS Safety Report 5429286-1 (Version None)
Quarter: 2007Q3

REPORT INFORMATION
  Report Type: 
  Country: None (occurrence: None)
  Receive Date: 20070827
  Receipt Date: 20070816
  Transmission Date: 20080115
  Serious: Yes (Congenital Anomaly)
  Sender: FDA-Public Use
  Company Number: CIP07001616

PATIENT
  Sex: Female
  Weight: 3.6 kg

DRUGS (4)
  1. ACTONEL [Suspect]
     Dosage: TRANSPLACENTAL
     Route: 064
  2. IMUREK /00001501/(AZATHIOPRINE) 175MG [Suspect]
     Dosage: TRANSPLACENTAL
     Route: 064
  3. PREDNISONE [Suspect]
     Dosage: TRANSPLACENTAL
     Route: 064
  4. PAROXETINE [Suspect]
     Dosage: TRANSPLACENTAL
     Route: 064

REACTIONS (3)
  - DRUG EXPOSURE DURING PREGNANCY [None]
  - KIDNEY ENLARGEMENT [None]
  - NEONATAL DISORDER [None]
